FAERS Safety Report 9124711 (Version 1)
Quarter: 2013Q1

REPORT INFORMATION
  Report Type: Spontaneous
  Country: MX (occurrence: MX)
  Receive Date: 20130227
  Receipt Date: 20130227
  Transmission Date: 20140127
  Serious: Yes (Other)
  Sender: FDA-Public Use
  Company Number: PHHY2013MX017939

PATIENT
  Age: 4 Year
  Sex: Male

DRUGS (2)
  1. TEGRETOL [Suspect]
     Indication: EPILEPSY
     Dosage: 7 ML, DAILY
     Route: 048
  2. TEGRETOL [Suspect]
     Dosage: 10 ML, DAILY
     Route: 048

REACTIONS (3)
  - Epilepsy [Recovering/Resolving]
  - Convulsion [Recovering/Resolving]
  - Headache [Recovering/Resolving]
